FAERS Safety Report 5843466-2 (Version None)
Quarter: 2008Q3

REPORT INFORMATION
  Report Type: 
  Country: None (occurrence: None)
  Receive Date: 20080811
  Receipt Date: 20080729
  Transmission Date: 20090109
  Serious: Yes (Disabling)
  Sender: FDA-Public Use
  Company Number: 107-#03#2008-03897

PATIENT
  Age: 66 Year
  Sex: Male

DRUGS (8)
  1. MIRTAZAPINE [Suspect]
     Indication: DEPRESSION
     Dosage: 30 MG ORAL
     Route: 048
     Dates: start: 20061106, end: 20080201
  2. CIPRALEX (ESCITALOPRAM OXALATE) [Suspect]
     Indication: DEPRESSION
     Dosage: 10 MG ORAL
     Route: 048
     Dates: start: 20060901, end: 20070821
  3. AMIAS (CANDESARTAN CILEXETIL) [Concomitant]
  4. BENDROFLUAZIDE (BENDROFLUAZIDE) [Concomitant]
  5. CARBOCISTEINE (CARBOCISTEINE) [Concomitant]
  6. DOXYCYCLINE [Concomitant]
  7. FLOXACILLIN SODIUM [Concomitant]
  8. LANSOPRAZOLE [Concomitant]

REACTIONS (8)
  - ABNORMAL BEHAVIOUR [None]
  - AGGRESSION [None]
  - DIARRHOEA [None]
  - DRUG INTERACTION [None]
  - MANIA [None]
  - MOOD SWINGS [None]
  - SOCIAL PROBLEM [None]
  - VISUAL IMPAIRMENT [None]
